FAERS Safety Report 11944081 (Version 2)
Quarter: 2016Q1

REPORT INFORMATION
  Report Type: Spontaneous
  Country: US (occurrence: US)
  Receive Date: 20160125
  Receipt Date: 20160229
  Transmission Date: 20160526
  Serious: Yes (Other)
  Sender: FDA-Public Use
  Company Number: US-BAYER-2016-012160

PATIENT
  Age: 95 Year
  Sex: Male
  Weight: 55.33 kg

DRUGS (6)
  1. MIRALAX [Suspect]
     Active Substance: POLYETHYLENE GLYCOL 3350
     Indication: CONSTIPATION
     Dosage: ONE TEASPOONFUL, QD
     Route: 048
     Dates: start: 201401
  2. HYDROXYZINE [Concomitant]
     Active Substance: HYDROXYZINE\HYDROXYZINE HYDROCHLORIDE
  3. MIRALAX [Suspect]
     Active Substance: POLYETHYLENE GLYCOL 3350
     Indication: CONSTIPATION
     Dosage: ONE QUARTER TEASPOONFUL, QD
     Route: 048
     Dates: end: 201503
  4. ASPIRIN. [Concomitant]
     Active Substance: ASPIRIN
  5. MIRALAX [Suspect]
     Active Substance: POLYETHYLENE GLYCOL 3350
     Indication: CONSTIPATION
     Dosage: HALF TEASPOONFUL, QD
     Route: 048
     Dates: start: 201412
  6. VALSARTAN. [Concomitant]
     Active Substance: VALSARTAN

REACTIONS (3)
  - Product use issue [None]
  - Intestinal obstruction [None]
  - Underdose [None]

NARRATIVE: CASE EVENT DATE: 201401
